FAERS Safety Report 24583820 (Version 1)
Quarter: 2024Q4

REPORT INFORMATION
  Report Type: Spontaneous
  Country: CN (occurrence: CN)
  Receive Date: 20241106
  Receipt Date: 20241106
  Transmission Date: 20250115
  Serious: Yes (Other)
  Sender: CHEPLAPHARM
  Company Number: CN-CHEPLA-2024014012

PATIENT
  Age: 22 Year
  Sex: Female

DRUGS (9)
  1. OLANZAPINE [Suspect]
     Active Substance: OLANZAPINE
     Indication: Anorexia nervosa
     Dosage: EVERY OTHER DAY
     Dates: start: 2023
  2. OLANZAPINE [Suspect]
     Active Substance: OLANZAPINE
     Indication: Psychiatric symptom
     Dosage: EVERY OTHER DAY
     Dates: start: 2023
  3. OLANZAPINE [Suspect]
     Active Substance: OLANZAPINE
     Indication: Mental disorder
     Dosage: EVERY OTHER DAY
     Dates: start: 2023
  4. OLANZAPINE [Suspect]
     Active Substance: OLANZAPINE
     Indication: Anorexia nervosa
     Dosage: DAILY DOSE: 1.25 MILLIGRAM
     Dates: start: 2023
  5. OLANZAPINE [Suspect]
     Active Substance: OLANZAPINE
     Indication: Psychiatric symptom
     Dosage: DAILY DOSE: 1.25 MILLIGRAM
     Dates: start: 2023
  6. OLANZAPINE [Suspect]
     Active Substance: OLANZAPINE
     Indication: Mental disorder
     Dosage: DAILY DOSE: 1.25 MILLIGRAM
     Dates: start: 2023
  7. MYCOPHENOLATE MOFETIL [Concomitant]
     Active Substance: MYCOPHENOLATE MOFETIL
     Indication: Systemic lupus erythematosus
  8. HYDROXYCHLOROQUINE [Concomitant]
     Active Substance: HYDROXYCHLOROQUINE
     Indication: Systemic lupus erythematosus
  9. PREDNISONE ACETATE [Concomitant]
     Active Substance: PREDNISONE ACETATE
     Indication: Systemic lupus erythematosus

REACTIONS (4)
  - Pericardial effusion [Recovered/Resolved]
  - Cardiac dysfunction [Recovered/Resolved]
  - Blood pressure decreased [Unknown]
  - Off label use [Unknown]
